FAERS Safety Report 22330847 (Version 1)
Quarter: 2023Q2

REPORT INFORMATION
  Report Type: Report from Study
  Country: GB (occurrence: GB)
  Receive Date: 20230517
  Receipt Date: 20230517
  Transmission Date: 20230721
  Serious: Yes (Other)
  Sender: FDA-Public Use
  Company Number: GB-SUN PHARMACEUTICAL INDUSTRIES LTD-2023R1-381149

PATIENT
  Age: 63 Year
  Sex: Female

DRUGS (3)
  1. CLOBETASOL [Suspect]
     Active Substance: CLOBETASOL
     Indication: Vulvovaginal candidiasis
     Dosage: 0.05 PERCENT
     Route: 065
  2. NYSTATIN [Suspect]
     Active Substance: NYSTATIN
     Indication: Vulvovaginal candidiasis
     Dosage: 100,000 UNITS PER GRAM
     Route: 065
  3. OXYTETRACYCLINE [Suspect]
     Active Substance: OXYTETRACYCLINE
     Indication: Vulvovaginal candidiasis
     Dosage: 3 PERCENT
     Route: 065

REACTIONS (1)
  - Therapy non-responder [Unknown]
